FAERS Safety Report 9465778 (Version 1)
Quarter: 2013Q3

REPORT INFORMATION
  Report Type: Spontaneous
  Country: US (occurrence: US)
  Receive Date: 20130820
  Receipt Date: 20130820
  Transmission Date: 20140515
  Serious: No
  Sender: FDA-Public Use
  Company Number: US-MYLANLABS-2013S1009006

PATIENT
  Age: 61 Year
  Sex: Female
  Weight: 76.2 kg

DRUGS (1)
  1. LIOTHYRONINE SODIUM TABLETS USP [Suspect]
     Indication: HYPOTHYROIDISM
     Route: 048
     Dates: start: 2012

REACTIONS (1)
  - Arthralgia [Not Recovered/Not Resolved]
